FAERS Safety Report 18767536 (Version 1)
Quarter: 2021Q1

REPORT INFORMATION
  Report Type: Spontaneous
  Country: US (occurrence: US)
  Receive Date: 20210120
  Receipt Date: 20210120
  Transmission Date: 20210419
  Serious: Yes (Other)
  Sender: FDA-Public Use
  Company Number: None

PATIENT
  Sex: Female

DRUGS (1)
  1. TECFIDERA [Suspect]
     Active Substance: DIMETHYL FUMARATE
     Indication: MULTIPLE SCLEROSIS
     Route: 048
     Dates: start: 20200121

REACTIONS (7)
  - Incontinence [None]
  - Tremor [None]
  - Movement disorder [None]
  - Pyrexia [None]
  - Gastric ulcer [None]
  - Pruritus [None]
  - Pain in extremity [None]
